FAERS Safety Report 4640430-6 (Version None)
Quarter: 2005Q2

REPORT INFORMATION
  Report Type: 
  Country: None (occurrence: None)
  Receive Date: 20050420
  Receipt Date: 20050415
  Transmission Date: 20051028
  Serious: Yes (Hospitalization, Other)
  Sender: FDA-Public Use
  Company Number: PHBS2005CZ05377

PATIENT
  Age: 58 Year
  Sex: Male

DRUGS (1)
  1. IMATINIB [Suspect]
     Indication: GASTROINTESTINAL STROMAL TUMOUR
     Dosage: 600 MG/D
     Route: 065
     Dates: start: 20020201, end: 20030201

REACTIONS (6)
  - ACUTE MYELOID LEUKAEMIA [None]
  - ALLOGENIC BONE MARROW TRANSPLANTATION THERAPY [None]
  - FATIGUE [None]
  - LEUKOPENIA [None]
  - NEUTROPENIA [None]
  - NIGHT SWEATS [None]
